FAERS Safety Report 4489607-3 (Version None)
Quarter: 2004Q4

REPORT INFORMATION
  Report Type: 
  Country: None (occurrence: None)
  Receive Date: 20041101
  Receipt Date: 20041021
  Transmission Date: 20050328
  Serious: Yes (Other)
  Sender: FDA-Public Use
  Company Number: PHEH2004US11430

PATIENT
  Age: 49 Year
  Sex: Male
  Weight: 78 kg

DRUGS (3)
  1. DIOVAN [Suspect]
     Dosage: 80 MG, QD
     Route: 048
  2. ZOCOR [Concomitant]
     Indication: HYPERCHOLESTEROLAEMIA
  3. ATENOLOL CHLORTHALIDONE ^BIOCHEMIE^ [Concomitant]

REACTIONS (2)
  - DRUG EXPOSURE DURING PREGNANCY [None]
  - MISCARRIAGE OF PARTNER [None]
